FAERS Safety Report 7546978-9 (Version None)
Quarter: 2011Q2

REPORT INFORMATION
  Report Type: 
  Country: None (occurrence: None)
  Receive Date: 20110614
  Receipt Date: 20110531
  Transmission Date: 20111010
  Serious: Yes (Hospitalization)
  Sender: FDA-Public Use
  Company Number: PHHY2011FR47601

PATIENT
  Age: 42 Year
  Sex: Female

DRUGS (5)
  1. ENBREL [Suspect]
     Dates: start: 20030324, end: 20030606
  2. NEORAL [Suspect]
     Route: 048
     Dates: start: 20000501, end: 20000901
  3. HUMIRA [Suspect]
     Dosage: 40 MG EVERY 2 WEEKS
     Route: 058
     Dates: start: 20030701
  4. REMICADE [Suspect]
     Route: 042
     Dates: start: 20001012, end: 20030122
  5. METHOTREXATE [Suspect]
     Dosage: 10 MG
     Route: 048
     Dates: start: 20030514

REACTIONS (1)
  - BASAL CELL CARCINOMA [None]
